FAERS Safety Report 12604676 (Version 4)
Quarter: 2016Q3

REPORT INFORMATION
  Report Type: Spontaneous
  Country: US (occurrence: US)
  Receive Date: 20160728
  Receipt Date: 20160814
  Transmission Date: 20161109
  Serious: Yes (Other)
  Sender: FDA-Public Use
  Company Number: US-009507513-1607USA012156

PATIENT
  Sex: Female

DRUGS (1)
  1. NEXPLANON [Suspect]
     Active Substance: ETONOGESTREL
     Dosage: IMPLANT, IN THE LEFT ARM
     Route: 059
     Dates: start: 201501

REACTIONS (3)
  - Device dislocation [Not Recovered/Not Resolved]
  - Menstruation irregular [Unknown]
  - Complication associated with device [Recovered/Resolved]
